FAERS Safety Report 7625731-1 (Version None)
Quarter: 2011Q3

REPORT INFORMATION
  Report Type: 
  Country: None (occurrence: None)
  Receive Date: 20110721
  Receipt Date: 20110718
  Transmission Date: 20111222
  Serious: Yes (Hospitalization, Other)
  Sender: FDA-Public Use
  Company Number: FR-BRISTOL-MYERS SQUIBB COMPANY-15911324

PATIENT
  Age: 91 Year
  Sex: Female

DRUGS (5)
  1. ESIDRIX [Interacting]
     Indication: HYPERTENSION
     Dosage: ESIDREX 25 MG TABLET
     Route: 048
     Dates: end: 20110427
  2. SOTALOL HCL [Concomitant]
     Indication: TACHYCARDIA
     Dosage: 1 DF: 0.5/D
     Route: 048
  3. PREVISCAN [Concomitant]
     Indication: PROPHYLAXIS
     Dosage: PREVISCAN 20 MG TABLET (FLUINDIONE) 0.75/D
     Route: 048
  4. ZOCOR [Concomitant]
     Indication: HYPERCHOLESTEROLAEMIA
     Dosage: 1 DF: ZOCOR 20 MG (SIMVASTATIN) 0.5/D
     Route: 048
  5. APROVEL TABS 300 MG [Suspect]
     Indication: HYPERTENSION
     Route: 048
     Dates: end: 20110427

REACTIONS (4)
  - DIARRHOEA [None]
  - FALL [None]
  - RENAL FAILURE ACUTE [None]
  - DRUG INTERACTION [None]
